FAERS Safety Report 19846165 (Version 2)
Quarter: 2021Q4

REPORT INFORMATION
  Report Type: Spontaneous
  Country: GB (occurrence: GB)
  Receive Date: 20210917
  Receipt Date: 20211005
  Transmission Date: 20220303
  Serious: Yes (Hospitalization)
  Sender: FDA-Public Use
  Company Number: None

PATIENT
  Age: 36 Year
  Sex: Male
  Weight: 84 kg

DRUGS (3)
  1. IBUPROFEN [Suspect]
     Active Substance: IBUPROFEN
     Indication: Product used for unknown indication
     Dosage: 2 TIMES A DAY
     Route: 065
     Dates: start: 20210812, end: 20210817
  2. PFIZER-BIONTECH COVID-19 VACCINE [Suspect]
     Active Substance: TOZINAMERAN
     Indication: Product used for unknown indication
     Dosage: DOSE 1
     Route: 065
     Dates: start: 20210525
  3. COLCHICINE [Suspect]
     Active Substance: COLCHICINE
     Indication: Pericarditis
     Dosage: 0.5MG BD FOR THREE MONTH
     Route: 065
     Dates: start: 20210906

REACTIONS (4)
  - Chest pain [Recovered/Resolved with Sequelae]
  - Pericarditis [Not Recovered/Not Resolved]
  - Burning sensation [Not Recovered/Not Resolved]
  - Drug ineffective [Unknown]

NARRATIVE: CASE EVENT DATE: 20210607
